FAERS Safety Report 11266781 (Version 5)
Quarter: 2015Q4

REPORT INFORMATION
  Report Type: Spontaneous
  Country: JP (occurrence: JP)
  Receive Date: 20150713
  Receipt Date: 20151118
  Transmission Date: 20160304
  Serious: Yes (Other)
  Sender: FDA-Public Use
  Company Number: JP-BAYER-2015-372049

PATIENT
  Age: 78 Year
  Sex: Male

DRUGS (7)
  1. OXYCODONE [Concomitant]
     Active Substance: OXYCODONE
     Dosage: 2.5 MG, TID BEFORE MEAL
     Route: 048
     Dates: start: 20140322, end: 20140324
  2. ACETAMINOPHEN. [Suspect]
     Active Substance: ACETAMINOPHEN
     Dosage: 1000 MG, TID BEFORE MEAL
     Route: 048
     Dates: start: 20140319, end: 20140329
  3. LOXOPROFEN [Suspect]
     Active Substance: LOXOPROFEN
     Indication: PAIN
     Dosage: 60 MG, PRN
     Route: 048
     Dates: start: 20140324, end: 20140329
  4. CETUXIMAB [Concomitant]
     Active Substance: CETUXIMAB
     Dosage: UNK
  5. WARFARIN POTASSIUM [Suspect]
     Active Substance: WARFARIN POTASSIUM
     Dosage: 1.75 MG, QD
     Route: 048
     Dates: end: 20140329
  6. WARFARIN POTASSIUM [Suspect]
     Active Substance: WARFARIN POTASSIUM
     Dosage: 1 MG, UNK
     Dates: start: 20140401
  7. BAYASPIRIN [Suspect]
     Active Substance: ASPIRIN
     Dosage: 100 MG, QD
     Route: 048
     Dates: start: 201402

REACTIONS (9)
  - Labelled drug-drug interaction medication error [None]
  - Internal haemorrhage [None]
  - Epistaxis [None]
  - Laryngeal erythema [None]
  - Oropharyngeal pain [None]
  - Pharyngeal erythema [None]
  - Mucosal haemorrhage [None]
  - International normalised ratio increased [Recovering/Resolving]
  - Haemorrhagic diathesis [None]

NARRATIVE: CASE EVENT DATE: 20140224
